FAERS Safety Report 10516155 (Version 2)
Quarter: 2014Q4

REPORT INFORMATION
  Report Type: Report from Study
  Country: US (occurrence: US)
  Receive Date: 20141014
  Receipt Date: 20141022
  Transmission Date: 20150528
  Serious: Yes (Hospitalization, Other)
  Sender: FDA-Public Use
  Company Number: US-ABBVIE-14P-163-1292681-00

PATIENT
  Sex: Female
  Weight: 28.6 kg

DRUGS (11)
  1. HUMIRA [Suspect]
     Active Substance: ADALIMUMAB
     Indication: OFF LABEL USE
  2. PRED FORTE [Concomitant]
     Active Substance: PREDNISOLONE ACETATE
     Indication: UVEITIS
     Dosage: EACH EYE
  3. HUMIRA [Suspect]
     Active Substance: ADALIMUMAB
     Indication: JUVENILE IDIOPATHIC ARTHRITIS
     Route: 058
     Dates: start: 2008, end: 2008
  4. HUMIRA [Suspect]
     Active Substance: ADALIMUMAB
     Indication: UVEITIS
     Route: 058
     Dates: start: 200803, end: 201409
  5. HUMIRA [Suspect]
     Active Substance: ADALIMUMAB
     Indication: UVEITIS
     Route: 058
     Dates: start: 201409
  6. TIMOLOL [Concomitant]
     Active Substance: TIMOLOL
     Indication: UVEITIS
  7. HUMIRA [Suspect]
     Active Substance: ADALIMUMAB
     Indication: JUVENILE IDIOPATHIC ARTHRITIS
  8. AZOPT [Concomitant]
     Active Substance: BRINZOLAMIDE
     Indication: UVEITIS
     Dosage: LEFT EYE
  9. VIGAMOX [Concomitant]
     Active Substance: MOXIFLOXACIN HYDROCHLORIDE
     Indication: UVEITIS
  10. METHOTREXATE [Concomitant]
     Active Substance: METHOTREXATE
     Indication: UVEITIS
     Route: 050
     Dates: start: 200606
  11. METHOTREXATE [Concomitant]
     Active Substance: METHOTREXATE
     Indication: JUVENILE IDIOPATHIC ARTHRITIS

REACTIONS (10)
  - Cataract [Unknown]
  - Drug ineffective [Not Recovered/Not Resolved]
  - Eye haemorrhage [Recovered/Resolved]
  - Eye operation [Unknown]
  - Intraocular lens extraction [Unknown]
  - Injection site pain [Not Recovered/Not Resolved]
  - Uveitis [Not Recovered/Not Resolved]
  - Vitrectomy [Unknown]
  - Eye inflammation [Recovered/Resolved]
  - Off label use [Not Recovered/Not Resolved]

NARRATIVE: CASE EVENT DATE: 2008
